FAERS Safety Report 15386062 (Version 3)
Quarter: 2018Q4

REPORT INFORMATION
  Report Type: Spontaneous
  Country: AT (occurrence: AT)
  Receive Date: 20180914
  Receipt Date: 20181107
  Transmission Date: 20190204
  Serious: Yes (Death, Life-Threatening, Hospitalization, Other)
  Sender: FDA-Public Use
  Company Number: PHHY2018AT097887

PATIENT
  Age: 74 Year
  Sex: Male
  Weight: 83 kg

DRUGS (1)
  1. ENTRESTO [Suspect]
     Active Substance: SACUBITRIL\VALSARTAN
     Indication: CONGESTIVE CARDIOMYOPATHY
     Dosage: 50 MG (24/26 MG), QD
     Route: 065
     Dates: start: 20160929, end: 20161114

REACTIONS (10)
  - Diarrhoea [Fatal]
  - Enteritis [Fatal]
  - Stool analysis abnormal [Unknown]
  - Weight decreased [Unknown]
  - Dizziness [Unknown]
  - Hypokalaemia [Fatal]
  - Syncope [Unknown]
  - Cardiorenal syndrome [Fatal]
  - Electrolyte imbalance [Fatal]
  - Nausea [Unknown]

NARRATIVE: CASE EVENT DATE: 20161105
